FAERS Safety Report 17797264 (Version 1)
Quarter: 2020Q2

REPORT INFORMATION
  Report Type: Spontaneous
  Country: US (occurrence: US)
  Receive Date: 20200515
  Receipt Date: 20200515
  Transmission Date: 20200714
  Serious: No
  Sender: FDA-Public Use
  Company Number: None

PATIENT
  Age: 57 Year
  Sex: Male
  Weight: 89.5 kg

DRUGS (15)
  1. REMDESIVIR. [Suspect]
     Active Substance: REMDESIVIR
     Indication: COVID-19
     Route: 041
     Dates: start: 20200509, end: 20200513
  2. CEFEPIME [Concomitant]
     Active Substance: CEFEPIME HYDROCHLORIDE
     Dates: start: 20200508
  3. ASPIRIN. [Concomitant]
     Active Substance: ASPIRIN
     Dates: start: 20200420
  4. FAMOTIDINE. [Concomitant]
     Active Substance: FAMOTIDINE
     Dates: start: 20200429
  5. HUMULIN N [Concomitant]
     Active Substance: INSULIN HUMAN
     Dates: start: 20200430
  6. VENELEX [Concomitant]
     Active Substance: BALSAM PERU\CASTOR OIL
     Dates: start: 20200429
  7. FENTANYL CONTINUOUS DRIP [Concomitant]
     Dates: start: 20200508
  8. DEXTOMETOMEDINE [Concomitant]
     Dates: start: 20200511
  9. METHYLPREDINOSOLONE [Concomitant]
     Dates: start: 20200514
  10. PROPOFOL. [Concomitant]
     Active Substance: PROPOFOL
     Dates: start: 20200508
  11. HUMALOG [Concomitant]
     Active Substance: INSULIN LISPRO
     Dates: start: 20200429
  12. HEPARIN SUBCUTANEOUS [Concomitant]
     Dates: start: 20200429
  13. OCEAN MIST [Concomitant]
     Dates: start: 20200424
  14. LACTOBACILLUS [Concomitant]
     Active Substance: LACTOBACILLUS ACIDOPHILUS
     Dates: start: 20200419
  15. REFRESH [Concomitant]
     Active Substance: UNSPECIFIED INGREDIENT
     Dates: start: 20200501

REACTIONS (3)
  - Acidosis [None]
  - Fluid overload [None]
  - Blood creatinine increased [None]

NARRATIVE: CASE EVENT DATE: 20200515
